FAERS Safety Report 15322142 (Version 2)
Quarter: 2018Q3

REPORT INFORMATION
  Report Type: Spontaneous
  Country: TW (occurrence: TW)
  Receive Date: 20180827
  Receipt Date: 20180831
  Transmission Date: 20181010
  Serious: Yes (Death, Hospitalization)
  Sender: FDA-Public Use
  Company Number: TW-JNJFOC-20180817393

PATIENT
  Age: 63 Year
  Sex: Male
  Weight: 52 kg

DRUGS (1)
  1. ZYTIGA [Suspect]
     Active Substance: ABIRATERONE ACETATE
     Indication: HORMONE-REFRACTORY PROSTATE CANCER
     Route: 048
     Dates: start: 20180206, end: 20180529

REACTIONS (4)
  - Septic shock [Fatal]
  - Prostate cancer [Fatal]
  - Thrombocytopenia [Unknown]
  - Pleural effusion [Fatal]

NARRATIVE: CASE EVENT DATE: 20180523
